FAERS Safety Report 9620730 (Version 2)
Quarter: 2014Q1

REPORT INFORMATION
  Report Type: Spontaneous
  Country: US (occurrence: US)
  Receive Date: 20131015
  Receipt Date: 20140205
  Transmission Date: 20141002
  Serious: No
  Sender: FDA-Public Use
  Company Number: US-BIOGENIDEC-2013BI096562

PATIENT
  Age: 53 Year
  Sex: Female

DRUGS (3)
  1. TYSABRI [Suspect]
     Indication: MULTIPLE SCLEROSIS
     Route: 042
     Dates: start: 20130924
  2. FLU VACCINE [Concomitant]
     Dates: start: 201309
  3. TB INJECTION (NOS) [Concomitant]

REACTIONS (8)
  - Hypoaesthesia [Not Recovered/Not Resolved]
  - Abnormal dreams [Recovered/Resolved]
  - Sleep disorder [Not Recovered/Not Resolved]
  - Nonspecific reaction [Recovered/Resolved]
  - Stomatitis [Recovered/Resolved]
  - Tongue disorder [Recovered/Resolved]
  - Malaise [Recovered/Resolved]
  - Fatigue [Recovered/Resolved]
